FAERS Safety Report 23467937 (Version 1)
Quarter: 2024Q1

REPORT INFORMATION
  Report Type: Spontaneous
  Country: US (occurrence: US)
  Receive Date: 20240201
  Receipt Date: 20240201
  Transmission Date: 20240409
  Serious: No
  Sender: FDA-Public Use
  Company Number: US-LUNDBECK-DKLU3071999

PATIENT
  Age: 37 Year
  Sex: Female

DRUGS (1)
  1. VYEPTI [Suspect]
     Active Substance: EPTINEZUMAB-JJMR
     Indication: Migraine
     Route: 041
     Dates: start: 20231222

REACTIONS (3)
  - Migraine [Unknown]
  - Tension headache [Unknown]
  - Fatigue [Unknown]

NARRATIVE: CASE EVENT DATE: 20231222
